FAERS Safety Report 7869084-2 (Version None)
Quarter: 2011Q4

REPORT INFORMATION
  Report Type: 
  Country: None (occurrence: None)
  Receive Date: 20111028
  Receipt Date: 20101227
  Transmission Date: 20120403
  Serious: No
  Sender: FDA-Public Use
  Company Number: US-AMGEN-USASP2010011843

PATIENT
  Sex: Female

DRUGS (1)
  1. ENBREL [Suspect]
     Indication: PSORIASIS
     Dosage: 50 MG, QWK
     Dates: start: 20060129, end: 20100101

REACTIONS (5)
  - PSORIASIS [None]
  - GASTRIC POLYPS [None]
  - RENAL CYST [None]
  - LIVER DISORDER [None]
  - ABDOMINAL PAIN [None]
